FAERS Safety Report 21005714 (Version 1)
Quarter: 2022Q2

REPORT INFORMATION
  Report Type: Spontaneous
  Country: JP (occurrence: JP)
  Receive Date: 20220624
  Receipt Date: 20220624
  Transmission Date: 20220720
  Serious: Yes (Death, Hospitalization, Other)
  Sender: FDA-Public Use
  Company Number: JP-ASTELLAS-2019US045176

PATIENT
  Age: 78 Year
  Sex: Male

DRUGS (7)
  1. BENDAMUSTINE HYDROCHLORIDE [Suspect]
     Active Substance: BENDAMUSTINE HYDROCHLORIDE
     Indication: Lymphoplasmacytoid lymphoma/immunocytoma
     Route: 042
     Dates: start: 20181127, end: 20181128
  2. BENDAMUSTINE HYDROCHLORIDE [Suspect]
     Active Substance: BENDAMUSTINE HYDROCHLORIDE
     Indication: Waldenstrom^s macroglobulinaemia
     Route: 042
     Dates: start: 20191107, end: 20191108
  3. RITUXIMAB [Suspect]
     Active Substance: RITUXIMAB
     Indication: Lymphoplasmacytoid lymphoma/immunocytoma
     Dosage: (4TH CYCLE)
     Route: 065
     Dates: start: 201807
  4. RITUXIMAB [Suspect]
     Active Substance: RITUXIMAB
     Indication: Waldenstrom^s macroglobulinaemia
     Route: 041
     Dates: start: 20181127
  5. RITUXIMAB [Suspect]
     Active Substance: RITUXIMAB
     Route: 041
     Dates: start: 20191106
  6. NOREPINEPHRINE [Concomitant]
     Active Substance: NOREPINEPHRINE
     Indication: Circulatory collapse
     Route: 041
     Dates: start: 20191111, end: 20191203
  7. VASOPRESSIN [Concomitant]
     Active Substance: VASOPRESSIN
     Indication: Circulatory collapse
     Route: 041
     Dates: start: 20191111, end: 20191122

REACTIONS (10)
  - Septic shock [Fatal]
  - Cardiac arrest [Unknown]
  - Malaise [Unknown]
  - Condition aggravated [Unknown]
  - Infection [Not Recovered/Not Resolved]
  - Pneumonia [Unknown]
  - Anaemia [Unknown]
  - Anaemia [Unknown]
  - Acidosis [Unknown]
  - Hypoglycaemia [Unknown]

NARRATIVE: CASE EVENT DATE: 20191105
